FAERS Safety Report 6734401-3 (Version None)
Quarter: 2010Q2

REPORT INFORMATION
  Report Type: 
  Country: None (occurrence: None)
  Receive Date: 20100520
  Receipt Date: 20100507
  Transmission Date: 20101027
  Serious: Yes (Other)
  Sender: FDA-Public Use
  Company Number: US-ELI_LILLY_AND_COMPANY-US201005002788

PATIENT
  Age: 40 Year
  Sex: Female

DRUGS (2)
  1. ZYPREXA [Suspect]
     Indication: BIPOLAR DISORDER
     Dosage: 1 D/F, UNK
     Dates: start: 20050101
  2. ZYPREXA [Suspect]
     Dosage: 40 MG, DAILY (1/D)

REACTIONS (2)
  - OVERDOSE [None]
  - WEIGHT INCREASED [None]
